FAERS Safety Report 9124436 (Version 2)
Quarter: 2013Q1

REPORT INFORMATION
  Report Type: Report from Study
  Country: JP (occurrence: JP)
  Receive Date: 20130227
  Receipt Date: 20130329
  Transmission Date: 20140127
  Serious: Yes (Death)
  Sender: FDA-Public Use
  Company Number: JP-OTSUKA-JP-2013-10486

PATIENT
  Age: 73 Year
  Sex: Female
  Weight: 106 kg

DRUGS (12)
  1. SAMSCA [Suspect]
     Indication: FLUID RETENTION
     Dosage: 7.5 MG MILLIGRAM(S), QAM
     Route: 048
     Dates: start: 20130130, end: 20130130
  2. SAMSCA [Suspect]
     Dosage: 15 MG MILLIGRAM(S), QAM
     Route: 048
     Dates: start: 20130131, end: 20130205
  3. ALDACTONE A [Concomitant]
     Indication: CARDIAC FAILURE
     Dosage: 25 MG MILLIGRAM(S), DAILY DOSE
     Route: 048
     Dates: end: 20130205
  4. PURSENNID [Concomitant]
     Indication: CONSTIPATION
     Dosage: 24 MG MILLIGRAM(S), DAILY DOSE
     Route: 048
     Dates: end: 20130205
  5. DEPAS [Concomitant]
     Indication: INSOMNIA
     Dosage: 1 MG MILLIGRAM(S), DAILY DOSE
     Route: 048
     Dates: end: 20130205
  6. BEHYD [Concomitant]
     Indication: CARDIAC FAILURE
     Dosage: 4 MG MILLIGRAM(S), DAILY DOSE
     Route: 048
     Dates: end: 20130205
  7. CLEANAL [Concomitant]
     Indication: ASTHMA
     Dosage: 200 MG MILLIGRAM(S), DAILY DOSE
     Route: 048
     Dates: end: 20130205
  8. TAKEPRON [Concomitant]
     Indication: GASTROOESOPHAGEAL REFLUX DISEASE
     Dosage: 15 MG MILLIGRAM(S), DAILY DOSE
     Route: 048
     Dates: end: 20130205
  9. PIMOBENDAN [Concomitant]
     Indication: CARDIAC FAILURE
     Dosage: 5 MG MILLIGRAM(S), DAILY DOSE
     Route: 048
     Dates: end: 20130205
  10. THYRADIN S [Concomitant]
     Indication: HYPOTHYROIDISM
     Dosage: 200 MCG, DAILY DOSE
     Route: 048
     Dates: end: 20130205
  11. DOBUPUM [Concomitant]
     Indication: CARDIAC FAILURE
     Dosage: 240 MG MILLIGRAM(S), DAILY DOSE
     Route: 042
     Dates: end: 20130205
  12. LASIX [Concomitant]
     Indication: CARDIAC FAILURE
     Dosage: 60 MG MILLIGRAM(S), DAILY DOSE
     Route: 042
     Dates: end: 20130205

REACTIONS (2)
  - Cardiac failure [Fatal]
  - Hypoventilation [Fatal]
